FAERS Safety Report 7000288-7 (Version None)
Quarter: 2010Q3

REPORT INFORMATION
  Report Type: 
  Country: None (occurrence: None)
  Receive Date: 20100920
  Receipt Date: 20100528
  Transmission Date: 20110219
  Serious: No
  Sender: FDA-Public Use
  Company Number: US-ASTRAZENECA-2010SE12509

PATIENT
  Sex: Male
  Weight: 83.9 kg

DRUGS (1)
  1. SEROQUEL [Suspect]
     Indication: SCHIZOPHRENIA, PARANOID TYPE
     Route: 048
     Dates: start: 20050101, end: 20100301

REACTIONS (8)
  - AGITATION [None]
  - DRUG DOSE OMISSION [None]
  - EATING DISORDER [None]
  - EXECUTIVE DYSFUNCTION [None]
  - INSOMNIA [None]
  - PALPITATIONS [None]
  - PANIC ATTACK [None]
  - VOMITING [None]
